FAERS Safety Report 17314292 (Version 1)
Quarter: 2020Q1

REPORT INFORMATION
  Report Type: Spontaneous
  Country: US (occurrence: US)
  Receive Date: 20200106
  Receipt Date: 20200106
  Transmission Date: 20200409
  Serious: Yes (Life-Threatening, Hospitalization, Other)
  Sender: FDA-Public Use
  Company Number: None

PATIENT
  Age: 24 Year
  Sex: Female
  Weight: .23 kg

DRUGS (2)
  1. BACLOFEN PUMP [Suspect]
     Active Substance: BACLOFEN
  2. BACLOFEN. [Suspect]
     Active Substance: BACLOFEN

REACTIONS (7)
  - Middle insomnia [None]
  - Urinary tract infection [None]
  - Abdominal rigidity [None]
  - Vomiting [None]
  - Hypertension [None]
  - Muscle spasms [None]
  - Diarrhoea [None]

NARRATIVE: CASE EVENT DATE: 20200104
